FAERS Safety Report 12179984 (Version 1)
Quarter: 2016Q1

REPORT INFORMATION
  Report Type: Spontaneous
  Country: US (occurrence: US)
  Receive Date: 20160314
  Receipt Date: 20160314
  Transmission Date: 20160526
  Serious: No
  Sender: FDA-Public Use
  Company Number: US-YUNG SHIN PHARMACEUTICAL IND.  CO., LTD.-1049029

PATIENT
  Age: 11 Month
  Sex: Female
  Weight: 9.09 kg

DRUGS (1)
  1. CEFACLOR. [Suspect]
     Active Substance: CEFACLOR
     Indication: OTITIS MEDIA
     Route: 048

REACTIONS (1)
  - Drug eruption [Recovered/Resolved]

NARRATIVE: CASE EVENT DATE: 201505
